FAERS Safety Report 4929223-X (Version None)
Quarter: 2006Q1

REPORT INFORMATION
  Report Type: 
  Country: None (occurrence: None)
  Receive Date: 20060301
  Receipt Date: 20050414
  Transmission Date: 20060701
  Serious: Yes (Other)
  Sender: FDA-Public Use
  Company Number: US-MERCK-0504USA02559

PATIENT
  Age: 58 Year
  Sex: Female
  Weight: 73 kg

DRUGS (2)
  1. VIOXX [Suspect]
     Indication: ARTHRITIS
     Route: 048
     Dates: start: 19990101, end: 20030101
  2. PREMPRO [Concomitant]
     Route: 065

REACTIONS (5)
  - APPENDICITIS [None]
  - BLINDNESS [None]
  - DIZZINESS [None]
  - HEADACHE [None]
  - SYNCOPE [None]
